FAERS Safety Report 5757344-0 (Version None)
Quarter: 2008Q2

REPORT INFORMATION
  Report Type: 
  Country: None (occurrence: None)
  Receive Date: 20080603
  Receipt Date: 20080523
  Transmission Date: 20081010
  Serious: Yes (Hospitalization, Other)
  Sender: FDA-Public Use
  Company Number: SE-ROCHE-566343

PATIENT
  Age: 27 Year
  Sex: Female

DRUGS (1)
  1. LARIAM [Suspect]
     Indication: MALARIA PROPHYLAXIS
     Route: 065
     Dates: start: 20071201, end: 20080201

REACTIONS (4)
  - HALLUCINATION, VISUAL [None]
  - INCOHERENT [None]
  - NIGHTMARE [None]
  - PSYCHOTIC DISORDER [None]
